FAERS Safety Report 9033138 (Version 1)
Quarter: 2013Q1

REPORT INFORMATION
  Report Type: Spontaneous
  Country: US (occurrence: US)
  Receive Date: 20130128
  Receipt Date: 20130128
  Transmission Date: 20140127
  Serious: Yes (Other)
  Sender: FDA-Public Use
  Company Number: US-TEVA-382188USA

PATIENT
  Age: 54 Year
  Sex: Female

DRUGS (10)
  1. CICLOSPORIN [Suspect]
     Indication: ACUTE GRAFT VERSUS HOST DISEASE
     Route: 065
     Dates: end: 201110
  2. CICLOSPORIN [Suspect]
     Indication: CHRONIC GRAFT VERSUS HOST DISEASE
     Dosage: THEN 150MG BID
     Route: 048
     Dates: end: 201110
  3. CICLOSPORIN [Suspect]
     Indication: CHRONIC GRAFT VERSUS HOST DISEASE
     Route: 048
     Dates: end: 201110
  4. PREDNISONE [Suspect]
     Indication: ACUTE GRAFT VERSUS HOST DISEASE
     Dosage: 10MG DAILY; LATER RECEIVED 25MG DAILY
     Route: 065
  5. PREDNISONE [Suspect]
     Indication: CHRONIC GRAFT VERSUS HOST DISEASE
     Dosage: 25MG DAILY; LATER RECEIVING 15MG
     Route: 065
  6. PREDNISONE [Suspect]
     Indication: CHRONIC GRAFT VERSUS HOST DISEASE
     Dosage: 15MG
     Route: 065
  7. IMATINIB [Concomitant]
     Indication: ACUTE GRAFT VERSUS HOST DISEASE
     Dosage: 50MG DAILY; THEN INCREASED TO 100MG DAILY
     Route: 065
     Dates: end: 201101
  8. IMATINIB [Concomitant]
     Indication: B PRECURSOR TYPE ACUTE LEUKAEMIA
     Dosage: 100MG DAILY
     Route: 065
     Dates: end: 201101
  9. NILOTINIB [Concomitant]
     Indication: B PRECURSOR TYPE ACUTE LEUKAEMIA
     Route: 048
     Dates: start: 201101
  10. CELLCEPT [Concomitant]
     Indication: CHRONIC GRAFT VERSUS HOST DISEASE
     Route: 048
     Dates: start: 201109

REACTIONS (2)
  - Myopathy [Unknown]
  - Renal failure acute [Unknown]
